FAERS Safety Report 5197178-1 (Version None)
Quarter: 2007Q1

REPORT INFORMATION
  Report Type: 
  Country: None (occurrence: None)
  Receive Date: 20070103
  Receipt Date: 20061221
  Transmission Date: 20070707
  Serious: Yes (Hospitalization, Other)
  Sender: FDA-Public Use
  Company Number: FR-BRISTOL-MYERS SQUIBB COMPANY-13622527

PATIENT
  Age: 78 Year
  Sex: Female

DRUGS (13)
  1. VASTEN TABS 40 MG [Suspect]
     Route: 048
     Dates: end: 20061009
  2. TRAMADOL HCL [Suspect]
     Indication: BACK PAIN
     Route: 048
     Dates: start: 20061002, end: 20061005
  3. ALDACTONE [Suspect]
     Route: 048
  4. OMEPRAZOLE [Suspect]
     Route: 048
     Dates: end: 20061009
  5. PREVISCAN [Concomitant]
     Route: 048
  6. SOTALOL HCL [Concomitant]
     Route: 048
  7. TRIVASTAL LP [Concomitant]
     Route: 048
  8. TENORMIN [Concomitant]
     Route: 048
  9. HEXAQUINE [Concomitant]
  10. ASPIRIN [Concomitant]
     Route: 048
  11. EFFERALGAN CODEINE [Concomitant]
     Route: 048
  12. DIPROSALIC [Concomitant]
     Route: 003
  13. DAIVONEX [Concomitant]

REACTIONS (7)
  - AGITATION [None]
  - BACK PAIN [None]
  - CONFUSIONAL STATE [None]
  - FALL [None]
  - HYPONATRAEMIA [None]
  - INTERVERTEBRAL DISC COMPRESSION [None]
  - VOMITING [None]
